FAERS Safety Report 16167798 (Version 1)
Quarter: 2019Q2

REPORT INFORMATION
  Report Type: Spontaneous
  Country: US (occurrence: US)
  Receive Date: 20190408
  Receipt Date: 20190408
  Transmission Date: 20190711
  Serious: No
  Sender: FDA-Public Use
  Company Number: US-JNJFOC-20190331242

PATIENT
  Age: 64 Year
  Sex: Male
  Weight: 70.76 kg

DRUGS (1)
  1. DARZALEX [Suspect]
     Active Substance: DARATUMUMAB
     Indication: PRODUCT USED FOR UNKNOWN INDICATION
     Route: 042
     Dates: start: 20190319

REACTIONS (5)
  - Infusion related reaction [Unknown]
  - Throat irritation [Unknown]
  - Dysphonia [Unknown]
  - Cough [Unknown]
  - Sneezing [Unknown]

NARRATIVE: CASE EVENT DATE: 20190319
